FAERS Safety Report 7488001-0 (Version None)
Quarter: 2011Q2

REPORT INFORMATION
  Report Type: 
  Country: None (occurrence: None)
  Receive Date: 20110518
  Receipt Date: 20110512
  Transmission Date: 20111010
  Serious: No
  Sender: FDA-Public Use
  Company Number: US-PFIZER INC-2011102647

PATIENT
  Sex: Female

DRUGS (1)
  1. ZMAX [Suspect]
     Indication: BRONCHITIS
     Dosage: UNK

REACTIONS (5)
  - DIARRHOEA [None]
  - DIZZINESS [None]
  - UNEVALUABLE EVENT [None]
  - ABDOMINAL DISCOMFORT [None]
  - ABDOMINAL PAIN [None]
